FAERS Safety Report 7943301-2 (Version None)
Quarter: 2011Q4

REPORT INFORMATION
  Report Type: 
  Country: None (occurrence: None)
  Receive Date: 20111128
  Receipt Date: 20111123
  Transmission Date: 20120403
  Serious: Yes (Life-Threatening, Hospitalization, Other)
  Sender: FDA-Public Use
  Company Number: PHHY2011BR103171

PATIENT
  Sex: Female

DRUGS (5)
  1. DIPYRONE INJ [Concomitant]
  2. GALVUS [Suspect]
     Dosage: 50 MG, UNK
  3. RASILEZ [Suspect]
     Dosage: 300 MG, UNK
  4. TANDRILAX [Concomitant]
  5. DIOVAN HCT [Suspect]
     Dosage: UNK DF (160/12.5MG)

REACTIONS (7)
  - INTERVERTEBRAL DISC PROTRUSION [None]
  - OSTEOARTHRITIS [None]
  - BLOOD GLUCOSE INCREASED [None]
  - MALAISE [None]
  - PAIN [None]
  - BONE PAIN [None]
  - GAIT DISTURBANCE [None]
